FAERS Safety Report 10577962 (Version 2)
Quarter: 2015Q1

REPORT INFORMATION
  Report Type: Spontaneous
  Country: IT (occurrence: IT)
  Receive Date: 20141112
  Receipt Date: 20150223
  Transmission Date: 20150720
  Serious: Yes (Hospitalization)
  Sender: FDA-Public Use
  Company Number: IT-ACCORD-026957

PATIENT
  Age: 61 Year
  Sex: Female

DRUGS (8)
  1. ESOPRAL [Concomitant]
     Active Substance: ESOMEPRAZOLE MAGNESIUM
     Dosage: STRENGTH: 20 MG
  2. TAVOR [Concomitant]
     Active Substance: LORAZEPAM
     Dosage: STRENGTH: 2.5 MG
  3. CRESTOR [Concomitant]
     Active Substance: ROSUVASTATIN CALCIUM
  4. CARDIRENE [Concomitant]
     Active Substance: ASPIRIN DL-LYSINE
     Dosage: STRENGTH: 75 MG
  5. FLUOROURACIL. [Suspect]
     Active Substance: FLUOROURACIL
     Indication: PRODUCT USED FOR UNKNOWN INDICATION
     Dates: start: 20140901, end: 20141001
  6. LYRICA [Concomitant]
     Active Substance: PREGABALIN
     Dosage: STRENGTH: 25 MG
  7. TEVA^S CALCIUM LEVOFOLINATE [Concomitant]
     Dosage: 25 MG
  8. OXALIPLATIN. [Suspect]
     Active Substance: OXALIPLATIN
     Indication: COLON NEOPLASM
     Route: 041
     Dates: start: 20140901, end: 20141001

REACTIONS (2)
  - Enteritis [Recovering/Resolving]
  - Headache [Recovering/Resolving]

NARRATIVE: CASE EVENT DATE: 20141101
